FAERS Safety Report 13817729 (Version 1)
Quarter: 2017Q3

REPORT INFORMATION
  Report Type: Report from Study
  Country: US (occurrence: US)
  Receive Date: 20170731
  Receipt Date: 20170731
  Transmission Date: 20171127
  Serious: Yes (Death)
  Sender: FDA-Public Use
  Company Number: US-ACTELION-A-US2016-138410

PATIENT
  Age: 76 Year
  Sex: Female
  Weight: 95.24 kg

DRUGS (6)
  1. OPSUMIT [Suspect]
     Active Substance: MACITENTAN
     Indication: PULMONARY HYPERTENSION
     Dosage: 10 MG, QD
     Route: 048
     Dates: start: 20151019
  2. TYVASO [Suspect]
     Active Substance: TREPROSTINIL
     Indication: PRODUCT USED FOR UNKNOWN INDICATION
     Dosage: 8 BREATHS
     Route: 065
  3. OFEV [Concomitant]
     Active Substance: NINTEDANIB
  4. ADCIRCA [Concomitant]
     Active Substance: TADALAFIL
  5. TYVASO [Suspect]
     Active Substance: TREPROSTINIL
     Dosage: 7 BREATHS, QID
     Route: 065
  6. ORENITRAM [Concomitant]
     Active Substance: TREPROSTINIL

REACTIONS (11)
  - Headache [Not Recovered/Not Resolved]
  - Palpitations [Not Recovered/Not Resolved]
  - Loss of consciousness [Unknown]
  - Dyspnoea exertional [Unknown]
  - Dyspnoea [Unknown]
  - Blood pressure decreased [Unknown]
  - Arthralgia [Unknown]
  - Death [Fatal]
  - Oedema [Not Recovered/Not Resolved]
  - Cough [Unknown]
  - Peripheral swelling [Unknown]

NARRATIVE: CASE EVENT DATE: 20170713
